FAERS Safety Report 7521437-8 (Version None)
Quarter: 2011Q2

REPORT INFORMATION
  Report Type: 
  Country: None (occurrence: None)
  Receive Date: 20110603
  Receipt Date: 20110118
  Transmission Date: 20111010
  Serious: Yes (Disabling)
  Sender: FDA-Public Use
  Company Number: HK-BAYER-201038069GPV

PATIENT
  Age: 53 Year
  Sex: Female
  Weight: 41 kg

DRUGS (4)
  1. SORAFENIB [Suspect]
     Indication: HEPATIC NEOPLASM MALIGNANT
     Route: 048
     Dates: start: 20100719, end: 20100808
  2. SORAFENIB [Suspect]
     Dosage: 200 MG, QD
     Route: 048
     Dates: start: 20101019, end: 20101028
  3. NORVASC [Concomitant]
     Indication: VITAMIN SUPPLEMENTATION
     Dosage: 5 MG (DAILY DOSE), , ORAL
     Route: 048
     Dates: start: 20070401
  4. SORAFENIB [Suspect]
     Dosage: 200 MG, QD
     Route: 048
     Dates: start: 20100809, end: 20100913

REACTIONS (5)
  - SKIN TOXICITY [None]
  - SKIN ULCER [None]
  - PALMAR-PLANTAR ERYTHRODYSAESTHESIA SYNDROME [None]
  - BLISTER [None]
  - PAIN IN EXTREMITY [None]
